FAERS Safety Report 5574693-X (Version None)
Quarter: 2007Q4

REPORT INFORMATION
  Report Type: 
  Country: None (occurrence: None)
  Receive Date: 20071221
  Receipt Date: 20071221
  Transmission Date: 20080405
  Serious: Yes (Death)
  Sender: FDA-Public Use
  Company Number: None

PATIENT
  Age: 42 Year
  Sex: Male
  Weight: 79.8331 kg

DRUGS (1)
  1. METHADONE HCL [Suspect]
     Indication: PAIN
     Dosage: 130MG. ONCE A DAY PO
     Route: 048
     Dates: start: 20000101, end: 20030101

REACTIONS (3)
  - LOSS OF CONSCIOUSNESS [None]
  - RHINORRHOEA [None]
  - SNORING [None]
